FAERS Safety Report 15475473 (Version 2)
Quarter: 2022Q1

REPORT INFORMATION
  Report Type: Spontaneous
  Country: CH (occurrence: CH)
  Receive Date: 20181008
  Receipt Date: 20220128
  Transmission Date: 20220423
  Serious: Yes (Life-Threatening, Hospitalization)
  Sender: FDA-Public Use
  Company Number: CH-SM-2018-12186

PATIENT
  Age: 65 Year
  Sex: Male

DRUGS (17)
  1. DICLOFENAC [Interacting]
     Active Substance: DICLOFENAC
     Dosage: AS NECESSARY
     Route: 048
     Dates: start: 201808, end: 201808
  2. DICLOFENAC [Interacting]
     Active Substance: DICLOFENAC
     Dosage: AS NECESSARY
     Route: 048
     Dates: start: 201808, end: 201808
  3. EPLERENONE [Interacting]
     Active Substance: EPLERENONE
     Route: 048
     Dates: end: 20180731
  4. EPLERENONE [Interacting]
     Active Substance: EPLERENONE
     Route: 048
     Dates: end: 20180731
  5. TORSEMIDE [Interacting]
     Active Substance: TORSEMIDE
     Route: 048
     Dates: end: 20180831
  6. TORSEMIDE [Interacting]
     Active Substance: TORSEMIDE
     Route: 048
     Dates: end: 20180831
  7. AMIODARONE [Interacting]
     Active Substance: AMIODARONE
     Route: 048
  8. AMIODARONE [Interacting]
     Active Substance: AMIODARONE
     Route: 048
  9. ASPIRIN [Suspect]
     Active Substance: ASPIRIN
     Route: 048
  10. LISINOPRIL [Suspect]
     Active Substance: LISINOPRIL
     Route: 048
     Dates: end: 20180731
  11. LISINOPRIL [Suspect]
     Active Substance: LISINOPRIL
     Route: 048
     Dates: start: 20180804
  12. LISINOPRIL [Suspect]
     Active Substance: LISINOPRIL
     Route: 048
     Dates: end: 20180731
  13. LISINOPRIL [Suspect]
     Active Substance: LISINOPRIL
     Route: 048
     Dates: start: 20180804
  14. PHENPROCOUMON [Concomitant]
     Active Substance: PHENPROCOUMON
     Route: 048
  15. ATORVASTATIN [Concomitant]
     Active Substance: ATORVASTATIN
     Route: 048
  16. EZETIMIBE [Concomitant]
     Active Substance: EZETIMIBE
     Route: 048
  17. PANTOPRAZOLE SODIUM [Concomitant]
     Active Substance: PANTOPRAZOLE SODIUM
     Dosage: AS NECESSARY
     Route: 048

REACTIONS (3)
  - Acute kidney injury [Recovering/Resolving]
  - Hyperkalaemia [Recovering/Resolving]
  - Drug interaction [Recovering/Resolving]

NARRATIVE: CASE EVENT DATE: 20180701
